FAERS Safety Report 17792630 (Version 1)
Quarter: 2020Q2

REPORT INFORMATION
  Report Type: Spontaneous
  Country: AR (occurrence: AR)
  Receive Date: 20200515
  Receipt Date: 20200515
  Transmission Date: 20200714
  Serious: Yes (Hospitalization)
  Sender: FDA-Public Use
  Company Number: AR-ELI_LILLY_AND_COMPANY-AR202005002810

PATIENT
  Age: 81 Year
  Sex: Female

DRUGS (3)
  1. DUXETIN 30MG [Suspect]
     Active Substance: DULOXETINE HYDROCHLORIDE
     Indication: NEURALGIA
     Dosage: 30 MG, DAILY
     Route: 065
     Dates: start: 20080101
  2. DUXETIN 30MG [Suspect]
     Active Substance: DULOXETINE HYDROCHLORIDE
     Dosage: 60 MG, DAILY
     Route: 065
  3. DUXETIN 30MG [Suspect]
     Active Substance: DULOXETINE HYDROCHLORIDE
     Dosage: 30 MG, DAILY
     Route: 065

REACTIONS (3)
  - Hyponatraemia [Unknown]
  - Hypotonia [Unknown]
  - Persistent depressive disorder [Unknown]

NARRATIVE: CASE EVENT DATE: 20200421
